FAERS Safety Report 5509356-X (Version None)
Quarter: 2007Q4

REPORT INFORMATION
  Report Type: 
  Country: None (occurrence: None)
  Receive Date: 20071107
  Receipt Date: 20071029
  Transmission Date: 20080405
  Serious: Yes (Other)
  Sender: FDA-Public Use
  Company Number: US-PFIZER INC-2007090964

PATIENT
  Sex: Male

DRUGS (1)
  1. NARDIL [Suspect]
     Indication: GENERALISED ANXIETY DISORDER

REACTIONS (3)
  - ARTHRALGIA [None]
  - DEPRESSION [None]
  - DRUG WITHDRAWAL SYNDROME [None]
